FAERS Safety Report 9425331 (Version 2)
Quarter: 2014Q3

REPORT INFORMATION
  Report Type: Spontaneous
  Country: US (occurrence: None)
  Receive Date: 20130725
  Receipt Date: 20140702
  Transmission Date: 20150326
  Serious: Yes (Hospitalization, Other)
  Sender: FDA-Public Use
  Company Number: JPI-P-033766

PATIENT
  Age: 33 Year
  Sex: Female
  Weight: 104.3 kg

DRUGS (2)
  1. XYREM [Suspect]
     Active Substance: SODIUM OXYBATE
     Indication: CATAPLEXY
     Dosage: SINGLE
     Route: 048
     Dates: start: 200401
  2. XYREM [Suspect]
     Active Substance: SODIUM OXYBATE
     Indication: NARCOLEPSY
     Dosage: SINGLE
     Route: 048
     Dates: start: 200401

REACTIONS (6)
  - Mastocytosis [None]
  - Pain [None]
  - Deep vein thrombosis [None]
  - Blood disorder [None]
  - Respiratory distress [None]
  - Pulmonary embolism [None]

NARRATIVE: CASE EVENT DATE: 2008
